FAERS Safety Report 17109103 (Version 5)
Quarter: 2023Q4

REPORT INFORMATION
  Report Type: Report from Study
  Country: KR (occurrence: None)
  Receive Date: 20191204
  Receipt Date: 20231026
  Transmission Date: 20240109
  Serious: Yes (Life-Threatening)
  Sender: FDA-Public Use
  Company Number: KR-ROCHE-2488032

PATIENT
  Age: 74 Year
  Sex: Male
  Weight: 51.8 kg

DRUGS (12)
  1. ATEZOLIZUMAB [Suspect]
     Active Substance: ATEZOLIZUMAB
     Indication: Bladder transitional cell carcinoma metastatic
     Dosage: DATE OF MOST RECENT DOSE OF ATEZOLIZUMAB: 06/NOV/2019
     Route: 042
     Dates: start: 20191017
  2. NIRAPARIB [Suspect]
     Active Substance: NIRAPARIB
     Indication: Bladder transitional cell carcinoma metastatic
     Dosage: DATE OF MOST RECENT DOSE OF NIRAPARIB: 24/NOV/2019
     Route: 048
     Dates: start: 20191017
  3. LACTULOSE [Concomitant]
     Active Substance: LACTULOSE
     Indication: Constipation
     Dosage: AS NEEDED
     Route: 048
     Dates: start: 201909
  4. PLAVIX [Concomitant]
     Active Substance: CLOPIDOGREL BISULFATE
     Indication: Atrial fibrillation
     Route: 048
     Dates: start: 201908, end: 20191027
  5. ASPIRIN [Concomitant]
     Active Substance: ASPIRIN
     Indication: Atrial fibrillation
     Route: 048
     Dates: start: 20191028, end: 20191124
  6. PENIRAMIN [Concomitant]
     Route: 042
     Dates: start: 20191125, end: 20191125
  7. PENIRAMIN [Concomitant]
     Route: 042
     Dates: start: 20191128, end: 20191128
  8. PENIRAMIN [Concomitant]
     Route: 042
     Dates: start: 20191202, end: 20191202
  9. HARTMANDEX [Concomitant]
     Route: 042
     Dates: start: 20191125, end: 20191125
  10. HUMAN RED BLOOD CELL [Concomitant]
     Active Substance: HUMAN RED BLOOD CELL
     Indication: Anaemia
     Dosage: 2 OTHER UNITS
     Route: 042
     Dates: start: 20191128, end: 20191128
  11. FOLIC ACID [Concomitant]
     Active Substance: FOLIC ACID
     Indication: Anaemia
     Route: 048
     Dates: start: 20191205, end: 20191223
  12. PYRIDOXINE [Concomitant]
     Active Substance: PYRIDOXINE
     Indication: Anaemia
     Route: 048
     Dates: start: 20191205, end: 20191223

REACTIONS (1)
  - Platelet count decreased [Recovered/Resolved]

NARRATIVE: CASE EVENT DATE: 20191125
